FAERS Safety Report 4864739-6 (Version None)
Quarter: 2005Q4

REPORT INFORMATION
  Report Type: 
  Country: None (occurrence: None)
  Receive Date: 20051222
  Receipt Date: 20051102
  Transmission Date: 20060501
  Serious: Yes (Hospitalization)
  Sender: FDA-Public Use
  Company Number: JP-MERCK-0511USA00822

PATIENT
  Age: 73 Year
  Sex: Male
  Weight: 65 kg

DRUGS (9)
  1. COZAAR [Suspect]
     Indication: CARDIAC FAILURE
     Route: 048
     Dates: start: 20030331, end: 20030803
  2. TRANDOLAPRIL [Suspect]
     Indication: CARDIAC FAILURE
     Route: 048
     Dates: start: 20030331
  3. LASIX [Suspect]
     Indication: CARDIAC FAILURE
     Route: 048
     Dates: start: 20030331
  4. SIGMART [Concomitant]
     Indication: CORONARY ARTERY INSUFFICIENCY
     Route: 048
     Dates: start: 20030331, end: 20030803
  5. NITOROL [Suspect]
     Indication: CORONARY ARTERY INSUFFICIENCY
     Route: 048
     Dates: start: 20030331, end: 20030803
  6. BUFFERIN [Concomitant]
     Indication: THROMBOSIS PROPHYLAXIS
     Route: 048
     Dates: start: 20030331
  7. MEXITIL [Concomitant]
     Indication: ARRHYTHMIA PROPHYLAXIS
     Route: 048
     Dates: start: 20030331
  8. MAGNESIUM OXIDE [Concomitant]
     Indication: PROPHYLAXIS AGAINST GASTROINTESTINAL ULCER
     Route: 048
     Dates: start: 20030331
  9. MARZULENE-S [Concomitant]
     Indication: PROPHYLAXIS AGAINST GASTROINTESTINAL ULCER
     Route: 048
     Dates: start: 20030331

REACTIONS (2)
  - HYPOTENSION [None]
  - LOSS OF CONSCIOUSNESS [None]
